FAERS Safety Report 4513599-1 (Version None)
Quarter: 2004Q4

REPORT INFORMATION
  Report Type: 
  Country: None (occurrence: None)
  Receive Date: 20041130
  Receipt Date: 20040810
  Transmission Date: 20050328
  Serious: No
  Sender: FDA-Public Use
  Company Number: US-GLAXOSMITHKLINE-A0521655A

PATIENT
  Age: 43 Year
  Sex: Female

DRUGS (4)
  1. WELLBUTRIN XL [Suspect]
     Indication: DEPRESSION
     Dosage: 150MG PER DAY
     Route: 048
     Dates: start: 20040720, end: 20040802
  2. PROZAC [Concomitant]
  3. TAGAMET [Concomitant]
  4. MULTI-VITAMIN [Concomitant]

REACTIONS (1)
  - RASH GENERALISED [None]
